FAERS Safety Report 6511341-6 (Version None)
Quarter: 2009Q4

REPORT INFORMATION
  Report Type: 
  Country: None (occurrence: None)
  Receive Date: 20091222
  Receipt Date: 20090301
  Transmission Date: 20100525
  Serious: No
  Sender: FDA-Public Use
  Company Number: US-ASTRAZENECA-2009UW05694

PATIENT
  Age: 20 Year
  Sex: Male

DRUGS (2)
  1. CRESTOR [Suspect]
     Route: 048
  2. ANTIDEPRESSANT [Concomitant]

REACTIONS (2)
  - DIZZINESS [None]
  - MALAISE [None]
